FAERS Safety Report 7668245-5 (Version None)
Quarter: 2011Q3

REPORT INFORMATION
  Report Type: 
  Country: None (occurrence: None)
  Receive Date: 20110808
  Receipt Date: 20101005
  Transmission Date: 20111222
  Serious: Yes (Other)
  Sender: FDA-Public Use
  Company Number: US-BAYER-201024108NA

PATIENT
  Age: 21 Year
  Sex: Female
  Weight: 56.236 kg

DRUGS (8)
  1. IMITREX [Concomitant]
  2. NAPROXEN [Concomitant]
  3. DEXAMETHASONE [Concomitant]
  4. SINGULAIR [Concomitant]
  5. TRIAMCINOLONE [Concomitant]
  6. ASPIRIN [Concomitant]
  7. YASMIN [Suspect]
     Indication: CONTRACEPTION
     Dosage: UNK UNK, QD
     Route: 048
     Dates: start: 20051101, end: 20080801
  8. LEXAPRO [Concomitant]

REACTIONS (5)
  - VISION BLURRED [None]
  - PAPILLOEDEMA [None]
  - RETINAL ARTERY EMBOLISM [None]
  - RETINAL ARTERY OCCLUSION [None]
  - VISUAL IMPAIRMENT [None]
